FAERS Safety Report 5311369-8 (Version None)
Quarter: 2007Q2

REPORT INFORMATION
  Report Type: 
  Country: None (occurrence: None)
  Receive Date: 20070430
  Receipt Date: 20070420
  Transmission Date: 20071010
  Serious: Yes (Hospitalization, Other)
  Sender: FDA-Public Use
  Company Number: PHBS2007US07036

PATIENT
  Age: 56 Year
  Sex: Female

DRUGS (18)
  1. CYCLOSPORINE [Suspect]
     Indication: HEART AND LUNG TRANSPLANT
     Dosage: 225 MG, BID
     Route: 065
  2. LEVOTHYROXINE SODIUM [Concomitant]
  3. CALCITRIOL [Concomitant]
  4. CLOTRIMAZOLE [Concomitant]
     Route: 048
  5. FOLIC ACID [Concomitant]
  6. CALCIUM CARBONATE [Concomitant]
  7. VITAMIN CAP [Concomitant]
  8. VITAMIN A [Concomitant]
  9. PREDNISONE TAB [Concomitant]
     Indication: HEART AND LUNG TRANSPLANT
     Dosage: 5 MG/D
     Route: 065
  10. PREDNISONE TAB [Concomitant]
     Dosage: 10 MG/D
     Route: 065
  11. AZATHIOPRINE [Concomitant]
     Indication: HEART AND LUNG TRANSPLANT
     Dosage: 75 MG/D
     Route: 065
  12. FOLATE SODIUM [Concomitant]
  13. HYDRALAZINE HCL [Concomitant]
  14. FUROSEMIDE [Concomitant]
  15. NIFEDIPINE [Concomitant]
  16. POTASSIUM SULFATE [Concomitant]
  17. ALUMINUM HYDROXIDE GEL [Concomitant]
  18. TRIMETHOPRIM [Concomitant]

REACTIONS (19)
  - ADHESION [None]
  - BENIGN NEOPLASM OF THYROID GLAND [None]
  - BLOOD CHOLESTEROL INCREASED [None]
  - BLOOD CREATININE INCREASED [None]
  - BLOOD TRIGLYCERIDES INCREASED [None]
  - BLOOD UREA INCREASED [None]
  - DIALYSIS [None]
  - HYPERLIPIDAEMIA [None]
  - LAPAROTOMY [None]
  - LOW DENSITY LIPOPROTEIN INCREASED [None]
  - NEPHRECTOMY [None]
  - OEDEMA PERIPHERAL [None]
  - PROTEINURIA [None]
  - RENAL FAILURE CHRONIC [None]
  - RENAL TRANSPLANT [None]
  - SALPINGECTOMY [None]
  - SMALL INTESTINAL OBSTRUCTION [None]
  - THYROIDECTOMY [None]
  - URINARY TRACT INFECTION [None]
